FAERS Safety Report 12232468 (Version 1)
Quarter: 2016Q2

REPORT INFORMATION
  Report Type: Spontaneous
  Country: FR (occurrence: FR)
  Receive Date: 20160401
  Receipt Date: 20160401
  Transmission Date: 20160815
  Serious: Yes (Disabling)
  Sender: FDA-Public Use
  Company Number: FR-TAKEDA-2016TJP006492

PATIENT
  Age: 73 Year
  Sex: Female

DRUGS (1)
  1. LANZOR [Suspect]
     Active Substance: LANSOPRAZOLE
     Indication: PRODUCT USED FOR UNKNOWN INDICATION
     Dosage: 1 UNITS, QD
     Route: 048
     Dates: start: 2004, end: 201602

REACTIONS (3)
  - Spinal pain [Recovered/Resolved]
  - Pain in jaw [Recovered/Resolved]
  - Arthralgia [Recovered/Resolved]

NARRATIVE: CASE EVENT DATE: 2013
